FAERS Safety Report 20986274 (Version 1)
Quarter: 2022Q2

REPORT INFORMATION
  Report Type: Spontaneous
  Country: US (occurrence: None)
  Receive Date: 20220617
  Receipt Date: 20220617
  Transmission Date: 20220721
  Serious: Yes (Life-Threatening, Hospitalization, Disabling, Other)
  Sender: FDA-Public Use
  Company Number: None

PATIENT
  Age: 42 Year
  Sex: Female
  Weight: 87.3 kg

DRUGS (7)
  1. ELIDEL [Suspect]
     Active Substance: PIMECROLIMUS
     Indication: Dry skin
     Dosage: OTHER QUANTITY : 1 1;?FREQUENCY : TWICE A DAY;?
     Route: 061
  2. CLOBETASOL [Concomitant]
     Active Substance: CLOBETASOL
  3. UNSPECIFIED INGREDIENT [Concomitant]
     Active Substance: UNSPECIFIED INGREDIENT
  4. CELECOXIB [Concomitant]
     Active Substance: CELECOXIB
  5. CITALOPRAM [Concomitant]
     Active Substance: CITALOPRAM HYDROBROMIDE
  6. cyclobenzaphrine [Concomitant]
  7. Tylenol 800 [Concomitant]

REACTIONS (14)
  - Skin discolouration [None]
  - Pain in extremity [None]
  - Autoimmune disorder [None]
  - Skin fissures [None]
  - Skin exfoliation [None]
  - Haemorrhage [None]
  - Skin weeping [None]
  - Oedema peripheral [None]
  - Burning sensation [None]
  - Full blood count abnormal [None]
  - Infection [None]
  - Product complaint [None]
  - Non-Hodgkin^s lymphoma [None]
  - Swelling [None]

NARRATIVE: CASE EVENT DATE: 20040108
